FAERS Safety Report 7388797-2 (Version None)
Quarter: 2011Q2

REPORT INFORMATION
  Report Type: 
  Country: None (occurrence: None)
  Receive Date: 20110401
  Receipt Date: 20110325
  Transmission Date: 20111010
  Serious: Yes (Hospitalization)
  Sender: FDA-Public Use
  Company Number: US-B.I. PHARMACEUTICALS,INC./RIDGEFIELD-2011-BP-09289BP

PATIENT
  Sex: Female

DRUGS (10)
  1. THYROXYL [Concomitant]
     Indication: HYPOTHYROIDISM
  2. RYTHMOL [Concomitant]
     Indication: ATRIAL FIBRILLATION
  3. PRADAXA [Suspect]
     Indication: ATRIAL FIBRILLATION
     Dosage: 300 MG
     Route: 048
     Dates: start: 20110309, end: 20110315
  4. AMBIEN [Concomitant]
     Indication: INSOMNIA
  5. RESTORIL [Concomitant]
     Indication: INSOMNIA
  6. PRADAXA [Suspect]
     Dosage: 300 MG
     Route: 048
     Dates: start: 20110317, end: 20110320
  7. LOTREL [Concomitant]
     Indication: HYPERTENSION
  8. SINEMET [Concomitant]
     Indication: RESTLESS LEGS SYNDROME
  9. REQUIP [Concomitant]
     Indication: RESTLESS LEGS SYNDROME
  10. VICODIN [Concomitant]
     Indication: RESTLESS LEGS SYNDROME

REACTIONS (4)
  - ABDOMINAL PAIN [None]
  - NAUSEA [None]
  - DIARRHOEA [None]
  - DYSPEPSIA [None]
